FAERS Safety Report 18795357 (Version 1)
Quarter: 2021Q1

REPORT INFORMATION
  Report Type: Report from Study
  Country: US (occurrence: US)
  Receive Date: 20210127
  Receipt Date: 20210127
  Transmission Date: 20210419
  Serious: Yes (Death, Hospitalization)
  Sender: FDA-Public Use
  Company Number: US-CELGENEUS-USA-20210102630

PATIENT
  Age: 67 Year
  Sex: Female
  Weight: 63.49 kg

DRUGS (19)
  1. ALPRAZOLAM. [Concomitant]
     Active Substance: ALPRAZOLAM
     Indication: ANXIETY
     Dosage: 0.5  MG
     Route: 065
  2. GEMCITABINE. [Suspect]
     Active Substance: GEMCITABINE
     Indication: PANCREATIC CARCINOMA METASTATIC
     Dosage: 1000  MG/M2
     Route: 042
     Dates: start: 20170829
  3. LIDOCAINE. [Concomitant]
     Active Substance: LIDOCAINE
     Indication: PAIN PROPHYLAXIS
     Route: 065
  4. MYRBETRIQ [Concomitant]
     Active Substance: MIRABEGRON
     Indication: CYSTITIS
     Dosage: 50 MG
     Route: 065
  5. OXYBUTYNIN CHLORIDE. [Concomitant]
     Active Substance: OXYBUTYNIN CHLORIDE
     Indication: CYSTITIS
     Dosage: 3.9 MG
     Route: 065
  6. MIRTAZAPINE. [Concomitant]
     Active Substance: MIRTAZAPINE
     Indication: DEPRESSION
     Dosage: 15MG
     Route: 065
  7. MORPHINE [Concomitant]
     Active Substance: MORPHINE
     Indication: PRODUCT USED FOR UNKNOWN INDICATION
     Route: 065
     Dates: start: 20180331
  8. NITROFURANTOIN. [Concomitant]
     Active Substance: NITROFURANTOIN
     Indication: URINARY TRACT INFECTION
     Dosage: 100 MG
     Route: 065
  9. ONDANSETRON [Concomitant]
     Active Substance: ONDANSETRON
     Indication: NAUSEA
     Dosage: 8 MG
     Route: 065
  10. OXYBUTYNIN CHLORIDE. [Concomitant]
     Active Substance: OXYBUTYNIN CHLORIDE
     Dosage: 5 MG
     Route: 065
  11. ABRAXANE [Suspect]
     Active Substance: PACLITAXEL
     Dosage: 125 MG/M2
     Route: 042
     Dates: start: 20180319, end: 20180326
  12. APX005M [Suspect]
     Active Substance: INVESTIGATIONAL PRODUCT
     Indication: PANCREATIC CARCINOMA METASTATIC
     Dosage: .1 MILLIGRAM/KILOGRAM
     Route: 042
     Dates: start: 20170831
  13. LIDOCAINE. [Concomitant]
     Active Substance: LIDOCAINE
     Indication: STOMATITIS
     Route: 065
  14. PHENAZOPYRIDINE. [Concomitant]
     Active Substance: PHENAZOPYRIDINE
     Indication: DYSURIA
     Dosage: 100 MG
     Route: 065
  15. APX005M [Suspect]
     Active Substance: INVESTIGATIONAL PRODUCT
     Dosage: .1 MILLIGRAM/KILOGRAM
     Route: 042
     Dates: start: 20180328, end: 20180328
  16. GEMCITABINE. [Suspect]
     Active Substance: GEMCITABINE
     Dosage: 1000  MG/M2
     Route: 042
     Dates: start: 20180319, end: 20180326
  17. MUPIROCIN. [Concomitant]
     Active Substance: MUPIROCIN
     Indication: NAIL DISORDER
     Route: 065
  18. CEFEPIME [Concomitant]
     Active Substance: CEFEPIME HYDROCHLORIDE
     Indication: PRODUCT USED FOR UNKNOWN INDICATION
     Route: 065
     Dates: start: 20180331
  19. ABRAXANE [Suspect]
     Active Substance: PACLITAXEL
     Indication: PANCREATIC CARCINOMA METASTATIC
     Dosage: 125 MG/M2
     Route: 042
     Dates: start: 20170829

REACTIONS (1)
  - Sepsis [Fatal]

NARRATIVE: CASE EVENT DATE: 20180401
